FAERS Safety Report 11768717 (Version 2)
Quarter: 2015Q4

REPORT INFORMATION
  Report Type: Spontaneous
  Country: ES (occurrence: ES)
  Receive Date: 20151123
  Receipt Date: 20151123
  Transmission Date: 20160304
  Serious: Yes (Other)
  Sender: FDA-Public Use
  Company Number: PHHY2015ES149687

PATIENT
  Age: 28 Year
  Sex: Female

DRUGS (2)
  1. METHYLPREDNISOLONE. [Suspect]
     Active Substance: METHYLPREDNISOLONE
     Indication: SPINAL CORD DISORDER
     Dosage: 3000 MG, UNK
     Route: 042
     Dates: start: 201306
  2. METHYLPREDNISOLONE. [Suspect]
     Active Substance: METHYLPREDNISOLONE
     Indication: NERVOUS SYSTEM DISORDER
     Dosage: 7000 MG, UNK
     Route: 042
     Dates: start: 201204

REACTIONS (1)
  - Hepatitis [Unknown]
